FAERS Safety Report 4452924-7 (Version None)
Quarter: 2004Q3

REPORT INFORMATION
  Report Type: 
  Country: None (occurrence: None)
  Receive Date: 20040916
  Receipt Date: 20040901
  Transmission Date: 20050211
  Serious: Yes (Hospitalization)
  Sender: FDA-Public Use
  Company Number: 2004-BP-07562RO

PATIENT
  Age: 82 Year
  Sex: Female

DRUGS (9)
  1. DEXAMETHASONE [Suspect]
     Indication: MULTIPLE MYELOMA
     Dosage: CYCLIC: 40 MG/D X 4 D/CYCLE (NR), PO
     Route: 048
     Dates: start: 20020801, end: 20020816
  2. PROPRANOLOL [Concomitant]
  3. LEVOTHYROXINE SODIUM [Concomitant]
  4. VERAPAMIL [Concomitant]
  5. ZOLPIDEM TARTRATE [Concomitant]
  6. ISOSORBIDE MONONITRATE [Concomitant]
  7. HYDROCODONE W/ACETAMINOPHEN (VICODIN) [Concomitant]
  8. OMEPRAZOLE [Concomitant]
  9. EPOETIN ALFA (EPOETIN ALFA) [Concomitant]

REACTIONS (1)
  - PNEUMONIA [None]
